FAERS Safety Report 25920938 (Version 1)
Quarter: 2025Q4

REPORT INFORMATION
  Report Type: Spontaneous
  Country: US (occurrence: US)
  Receive Date: 20251014
  Receipt Date: 20251014
  Transmission Date: 20260117
  Serious: No
  Sender: MYLAN
  Company Number: US-MYLANLABS-2025M1085271

PATIENT

DRUGS (1)
  1. TYRVAYA [Suspect]
     Active Substance: VARENICLINE TARTRATE
     Indication: Product used for unknown indication
     Dosage: UNK

REACTIONS (3)
  - Oropharyngeal pain [Unknown]
  - Nasopharyngitis [Recovered/Resolved]
  - Dry eye [Unknown]
